FAERS Safety Report 8975887 (Version 1)
Quarter: 2012Q4

REPORT INFORMATION
  Report Type: 
  Country: US (occurrence: US)
  Receive Date: 20121219
  Receipt Date: 20121219
  Transmission Date: 20130627
  Serious: Yes (Death, Life-Threatening, Disabling, Other)
  Sender: FDA-Public Use
  Company Number: US-GLAXOSMITHKLINE-A1005575A

PATIENT
  Age: 66 Year
  Sex: Male

DRUGS (5)
  1. VOTRIENT [Suspect]
     Indication: RENAL CELL CARCINOMA
     Dosage: 200MG Per day
     Route: 048
     Dates: start: 201210
  2. TEMAZEPAM [Concomitant]
  3. PREDNISONE [Concomitant]
  4. METOPROLOL [Concomitant]
  5. NORCO [Concomitant]

REACTIONS (2)
  - Death [Fatal]
  - Diarrhoea [Unknown]
